FAERS Safety Report 25345008 (Version 4)
Quarter: 2025Q4

REPORT INFORMATION
  Report Type: Spontaneous
  Country: US (occurrence: US)
  Receive Date: 20250522
  Receipt Date: 20251029
  Transmission Date: 20260119
  Serious: Yes (Other)
  Sender: AMGEN
  Company Number: US-AMGEN-USASP2025098685

PATIENT
  Age: 22 Year
  Sex: Male

DRUGS (8)
  1. OTEZLA [Suspect]
     Active Substance: APREMILAST
     Indication: Psoriasis
     Dosage: 30 MILLIGRAM, BID
     Route: 048
     Dates: start: 20240914
  2. OTEZLA [Suspect]
     Active Substance: APREMILAST
     Dosage: 30 MILLIGRAM, BID
     Route: 048
     Dates: start: 20250313
  3. REPATHA [Suspect]
     Active Substance: EVOLOCUMAB
     Indication: Product used for unknown indication
     Dosage: 140 MILLIGRAM PER MILLILITRE
     Route: 065
  4. INGREZZA [Suspect]
     Active Substance: VALBENAZINE DITOSYLATE
     Indication: Tardive dyskinesia
     Dosage: 30 MILLIGRAM, BID
     Route: 048
     Dates: start: 20250121, end: 2025
  5. RISPERIDONE [Concomitant]
     Active Substance: RISPERIDONE
     Indication: Product used for unknown indication
     Dosage: 1 MILLIGRAM
     Route: 065
  6. ZYRTEC [Concomitant]
     Active Substance: CETIRIZINE HYDROCHLORIDE
     Dosage: 10 MILLIGRAM
     Route: 065
  7. VITAMINS [Concomitant]
     Active Substance: VITAMINS
     Route: 065
  8. NASAL RELIEF (OXYMETAZOLINE HYDROCHLORIDE) [Concomitant]
     Active Substance: OXYMETAZOLINE HYDROCHLORIDE
     Dosage: 0.05 PERCENT
     Route: 065

REACTIONS (3)
  - Hyperprolactinaemia [Not Recovered/Not Resolved]
  - Incontinence [Not Recovered/Not Resolved]
  - Weight increased [Not Recovered/Not Resolved]

NARRATIVE: CASE EVENT DATE: 20250228
